FAERS Safety Report 12889919 (Version 2)
Quarter: 2016Q4

REPORT INFORMATION
  Report Type: Spontaneous
  Country: US (occurrence: US)
  Receive Date: 20161027
  Receipt Date: 20161202
  Transmission Date: 20170207
  Serious: No
  Sender: FDA-Public Use
  Company Number: US-LUNDBECK-DKLU2021137

PATIENT
  Age: 61 Year
  Sex: Female

DRUGS (3)
  1. NORTHERA [Suspect]
     Active Substance: DROXIDOPA
     Indication: PARKINSON^S DISEASE
     Dosage: SCHEDULE B (TITRATING)
     Route: 048
     Dates: start: 20161007
  2. NORTHERA [Suspect]
     Active Substance: DROXIDOPA
     Route: 048
     Dates: start: 20161022
  3. NORTHERA [Suspect]
     Active Substance: DROXIDOPA
     Route: 048

REACTIONS (5)
  - Hypotension [Unknown]
  - Chills [Unknown]
  - Dizziness [Unknown]
  - Drug dose titration not performed [Unknown]
  - Presyncope [Unknown]

NARRATIVE: CASE EVENT DATE: 20161024
